FAERS Safety Report 18186985 (Version 1)
Quarter: 2020Q3

REPORT INFORMATION
  Report Type: Spontaneous
  Country: CN (occurrence: CN)
  Receive Date: 20200824
  Receipt Date: 20200824
  Transmission Date: 20201103
  Serious: Yes (Disabling)
  Sender: FDA-Public Use
  Company Number: CN-ASTELLAS-2020US028357

PATIENT
  Age: 77 Year
  Sex: Male

DRUGS (1)
  1. XTANDI [Suspect]
     Active Substance: ENZALUTAMIDE
     Indication: PRODUCT USED FOR UNKNOWN INDICATION
     Dosage: UNK UNK, UNKNOWN FREQ.
     Route: 048
     Dates: end: 20200818

REACTIONS (7)
  - Fatigue [Not Recovered/Not Resolved]
  - Asthenia [Unknown]
  - Fall [Unknown]
  - Hip deformity [Unknown]
  - Injury [Unknown]
  - Decreased appetite [Not Recovered/Not Resolved]
  - Bedridden [Unknown]

NARRATIVE: CASE EVENT DATE: 20200818
